FAERS Safety Report 16834057 (Version 1)
Quarter: 2019Q3

REPORT INFORMATION
  Report Type: Spontaneous
  Country: US (occurrence: US)
  Receive Date: 20190920
  Receipt Date: 20190920
  Transmission Date: 20191005
  Serious: Yes (Hospitalization)
  Sender: FDA-Public Use
  Company Number: US-BIOMARINAP-US-2019-125746

PATIENT

DRUGS (1)
  1. BRINEURA [Suspect]
     Active Substance: CERLIPONASE ALFA
     Indication: PRODUCT USED FOR UNKNOWN INDICATION
     Dosage: 300 MILLIGRAM, QOW
     Route: 020
     Dates: start: 20180621

REACTIONS (8)
  - Staring [Unknown]
  - Myoclonus [Unknown]
  - Lethargy [Unknown]
  - Vision blurred [Unknown]
  - Pruritus [Unknown]
  - Catheter site swelling [Recovering/Resolving]
  - Slow response to stimuli [Unknown]
  - Headache [Unknown]

NARRATIVE: CASE EVENT DATE: 20190909
